FAERS Safety Report 5995856-5 (Version None)
Quarter: 2008Q4

REPORT INFORMATION
  Report Type: 
  Country: None (occurrence: None)
  Receive Date: 20081212
  Receipt Date: 20081211
  Transmission Date: 20090506
  Serious: Yes (Other)
  Sender: FDA-Public Use
  Company Number: US-B.I. PHARMACEUTICALS,INC./RIDGEFIELD-2008-BP-16562BP

PATIENT
  Sex: Female

DRUGS (8)
  1. COMBIVENT [Suspect]
     Indication: DYSPNOEA
  2. NEBULIZER [Concomitant]
  3. OXYGEN [Concomitant]
     Indication: NASOPHARYNGITIS
  4. ACTONEL [Concomitant]
  5. PLAVIX [Concomitant]
  6. CLONAZEPAM [Concomitant]
  7. ZOCOR [Concomitant]
  8. HYOSCYAMINE [Concomitant]

REACTIONS (3)
  - CARDIAC DISORDER [None]
  - DYSPNOEA [None]
  - NASOPHARYNGITIS [None]
